FAERS Safety Report 8033942-9 (Version None)
Quarter: 2012Q1

REPORT INFORMATION
  Report Type: 
  Country: None (occurrence: None)
  Receive Date: 20120110
  Receipt Date: 20111227
  Transmission Date: 20120608
  Serious: Yes (Hospitalization)
  Sender: FDA-Public Use
  Company Number: FR-CELGENEUS-056-21880-11100363

PATIENT
  Sex: Male

DRUGS (26)
  1. NEXIUM [Concomitant]
     Route: 065
     Dates: start: 20110517
  2. AUGMENTIN '125' [Concomitant]
     Indication: UPPER RESPIRATORY TRACT INFECTION
     Route: 065
     Dates: start: 20110905, end: 20110907
  3. LASIX [Concomitant]
     Route: 065
     Dates: start: 20110914, end: 20110918
  4. DEXAMETHASONE [Suspect]
     Route: 065
     Dates: start: 20110517
  5. REVLIMID [Suspect]
     Route: 048
     Dates: start: 20110517
  6. PIPERACILLIN AND TAZOBACTAM [Concomitant]
     Indication: COUGH
     Route: 065
     Dates: start: 20110608, end: 20110915
  7. ACETAMINOPHEN AND TRAMADOL HCL [Concomitant]
     Route: 065
     Dates: start: 20110901
  8. ACUPAN [Concomitant]
     Route: 065
     Dates: start: 20110902, end: 20110920
  9. ISOCORT [Concomitant]
     Route: 065
     Dates: start: 20110517, end: 20110101
  10. PYOSTACINE [Concomitant]
     Route: 065
     Dates: start: 20110925, end: 20110901
  11. CLONAZEPAM [Concomitant]
     Route: 065
     Dates: start: 20110901
  12. NEURONTIN [Concomitant]
     Route: 065
     Dates: start: 20110902
  13. POLYETHYLENE GLYCOL [Concomitant]
     Indication: CONSTIPATION
     Route: 065
     Dates: start: 20110501, end: 20110801
  14. BORTEZOMIB [Suspect]
     Route: 065
     Dates: end: 20110718
  15. VALACYCLOVIR HYDROCHLORIDE [Concomitant]
     Route: 065
     Dates: start: 20110517
  16. ROVAMYCINE [Concomitant]
     Indication: COUGH
     Route: 065
     Dates: start: 20110910, end: 20110918
  17. CEFTAZIDIME SODIUM [Concomitant]
     Route: 065
     Dates: start: 20110916, end: 20110921
  18. VANCOMYCIN [Concomitant]
     Indication: INFECTION
     Route: 065
     Dates: start: 20110914, end: 20110918
  19. ZOFRAN [Concomitant]
     Indication: NAUSEA
     Route: 065
     Dates: start: 20110901, end: 20110920
  20. BORTEZOMIB [Suspect]
     Route: 065
     Dates: start: 20110517
  21. AMOXICILLIN TRIHYDRATE [Concomitant]
     Route: 065
     Dates: start: 20110517
  22. TRAMADOL HCL [Concomitant]
     Route: 065
     Dates: start: 20110715
  23. BACTRIM [Concomitant]
     Route: 065
     Dates: start: 20110517
  24. LOVENOX [Concomitant]
     Indication: THROMBOSIS PROPHYLAXIS
     Route: 065
     Dates: start: 20110517
  25. PRIMPERAN TAB [Concomitant]
     Indication: NAUSEA
     Route: 065
     Dates: start: 20110901, end: 20110925
  26. FLAGYL [Concomitant]
     Indication: PSEUDOMONAS INFECTION
     Route: 065
     Dates: start: 20110922, end: 20110925

REACTIONS (1)
  - NEUROPATHY PERIPHERAL [None]
